FAERS Safety Report 7986247-6 (Version None)
Quarter: 2011Q4

REPORT INFORMATION
  Report Type: 
  Country: None (occurrence: None)
  Receive Date: 20111216
  Receipt Date: 20110808
  Transmission Date: 20120403
  Serious: No
  Sender: FDA-Public Use
  Company Number: US-BRISTOL-MYERS SQUIBB COMPANY-15865975

PATIENT
  Age: 49 Year
  Sex: Female

DRUGS (3)
  1. KLONOPIN [Suspect]
  2. ABILIFY [Suspect]
     Indication: BIPOLAR DISORDER
     Dosage: 1 DF: 1 TABS
     Route: 048
     Dates: start: 20110512
  3. SEROQUEL [Concomitant]
     Dosage: 1 DF: 50 UNIT NOS DAY2:100MG DAY3:450MG DAY4:200MG

REACTIONS (2)
  - AKATHISIA [None]
  - DYSTONIA [None]
